FAERS Safety Report 21878925 (Version 1)
Quarter: 2023Q1

REPORT INFORMATION
  Report Type: Spontaneous
  Country: US (occurrence: None)
  Receive Date: 20230117
  Receipt Date: 20230117
  Transmission Date: 20230417
  Serious: No
  Sender: FDA-Public Use
  Company Number: None

PATIENT
  Age: 3 Year
  Sex: Female
  Weight: 15.03 kg

DRUGS (2)
  1. AMOXICILLIN [Suspect]
     Active Substance: AMOXICILLIN
     Indication: Ear infection
     Dosage: OTHER QUANTITY : 8.5 ML;?FREQUENCY : TWICE A DAY;?
     Route: 048
     Dates: start: 20230106, end: 20230115
  2. OLLY MULTIVITAMIN WITH PROBIOTIC [Concomitant]

REACTIONS (2)
  - Serum sickness-like reaction [None]
  - Contusion [None]

NARRATIVE: CASE EVENT DATE: 20230115
